FAERS Safety Report 8484186-8 (Version None)
Quarter: 2012Q3

REPORT INFORMATION
  Report Type: 
  Country: None (occurrence: None)
  Receive Date: 20120703
  Receipt Date: 20120625
  Transmission Date: 20120928
  Serious: Yes (Other)
  Sender: FDA-Public Use
  Company Number: RS-UCBSA-030958

PATIENT
  Sex: Female
  Weight: 53 kg

DRUGS (5)
  1. IMURAN [Concomitant]
     Route: 048
     Dates: start: 20100825, end: 20111122
  2. CIMZIA [Suspect]
     Dosage: CDP870-033
     Route: 058
     Dates: start: 20041116
  3. CIMZIA [Suspect]
     Dosage: CDP870-032
     Route: 058
     Dates: start: 20040629, end: 20041018
  4. CIMZIA [Suspect]
     Indication: CROHN'S DISEASE
     Dosage: CDP870-032
     Route: 058
     Dates: start: 20040504, end: 20040601
  5. IMURAN [Concomitant]
     Indication: CROHN'S DISEASE
     Route: 048
     Dates: start: 20030618

REACTIONS (1)
  - HEPATIC CIRRHOSIS [None]
